FAERS Safety Report 18593076 (Version 1)
Quarter: 2020Q4

REPORT INFORMATION
  Report Type: Spontaneous
  Country: US (occurrence: US)
  Receive Date: 20201209
  Receipt Date: 20201209
  Transmission Date: 20210114
  Serious: No
  Sender: FDA-Public Use
  Company Number: US-BION-009023

PATIENT
  Age: 62 Year
  Sex: Female
  Weight: 72.57 kg

DRUGS (4)
  1. ZINC. [Suspect]
     Active Substance: ZINC
     Indication: BONE LOSS
     Dosage: 50 MG 1 TABLET BY MOUTH DAILY
  2. PREMARIN [Suspect]
     Active Substance: ESTROGENS, CONJUGATED
     Indication: BONE LOSS
     Dosage: 0.3MG 1 TABLET BY MOUTH DAILY
  3. CALCIUM [Suspect]
     Active Substance: CALCIUM
     Indication: BONE LOSS
     Dosage: 500 MG 2 TABLETS BY MOUTH DAILY
  4. BIONPHARMA^S VITAMIN D UNSPECIFIED [Suspect]
     Active Substance: ERGOCALCIFEROL
     Indication: BONE LOSS

REACTIONS (1)
  - Therapeutic product effect increased [Unknown]
